FAERS Safety Report 18554690 (Version 1)
Quarter: 2020Q4

REPORT INFORMATION
  Report Type: Spontaneous
  Country: BR (occurrence: BR)
  Receive Date: 20201127
  Receipt Date: 20201127
  Transmission Date: 20210114
  Serious: Yes (Other)
  Sender: FDA-Public Use
  Company Number: NVSC2020BR315420

PATIENT
  Age: 62 Year
  Sex: Female

DRUGS (5)
  1. DENOSUMAB [Suspect]
     Active Substance: DENOSUMAB
     Indication: BONE DISORDER
     Dosage: 120 MG, QMO
     Route: 058
     Dates: start: 202006
  2. FULVESTRANT. [Suspect]
     Active Substance: FULVESTRANT
     Dosage: 500 MG, QMO
     Route: 030
     Dates: start: 202006
  3. FULVESTRANT. [Suspect]
     Active Substance: FULVESTRANT
     Indication: BREAST CANCER METASTATIC
     Dosage: UNK (FIRST LINE TREATMENT)
     Route: 030
     Dates: start: 201810
  4. ALPELISIB [Suspect]
     Active Substance: ALPELISIB
     Indication: BREAST CANCER METASTATIC
     Dosage: 300 MG, QD
     Route: 048
     Dates: start: 202006
  5. ALPELISIB [Suspect]
     Active Substance: ALPELISIB
     Dosage: 250 MG, QD
     Route: 065

REACTIONS (8)
  - Hyperglycaemia [Recovering/Resolving]
  - Rash [Recovering/Resolving]
  - Mucosal inflammation [Unknown]
  - Diarrhoea [Unknown]
  - Bone lesion [Unknown]
  - Hypermetabolism [Unknown]
  - Back pain [Unknown]
  - Metastases to bone [Unknown]
